FAERS Safety Report 14719683 (Version 1)
Quarter: 2018Q2

REPORT INFORMATION
  Report Type: Spontaneous
  Country: DE (occurrence: DE)
  Receive Date: 20180405
  Receipt Date: 20180405
  Transmission Date: 20180711
  Serious: Yes (Life-Threatening, Hospitalization)
  Sender: FDA-Public Use
  Company Number: DE-ACCORD-065168

PATIENT
  Age: 57 Year
  Sex: Female

DRUGS (10)
  1. METOPROLOL. [Concomitant]
     Active Substance: METOPROLOL
  2. PANTOPRAZOLE [Concomitant]
     Active Substance: PANTOPRAZOLE
  3. ATORVASTATIN [Concomitant]
     Active Substance: ATORVASTATIN
  4. LEVOTHYROXINE. [Concomitant]
     Active Substance: LEVOTHYROXINE
  5. AMILORIDE/HYDROCHLOROTHIAZIDE [Concomitant]
     Dosage: 5/50 MG
  6. LITHIUM. [Concomitant]
     Active Substance: LITHIUM
  7. SERTRALINE [Concomitant]
     Active Substance: SERTRALINE HYDROCHLORIDE
     Indication: SCHIZOAFFECTIVE DISORDER
     Dosage: UP TO 150 MG/DAY
  8. LORAZEPAM. [Concomitant]
     Active Substance: LORAZEPAM
  9. METFORMIN [Concomitant]
     Active Substance: METFORMIN HYDROCHLORIDE
  10. CLOZAPINE. [Suspect]
     Active Substance: CLOZAPINE
     Indication: SCHIZOAFFECTIVE DISORDER
     Dosage: TITRATED UP TO 200 MG/DAY

REACTIONS (2)
  - Drug level above therapeutic [Unknown]
  - Drug reaction with eosinophilia and systemic symptoms [Recovered/Resolved]
